FAERS Safety Report 23354914 (Version 1)
Quarter: 2024Q1

REPORT INFORMATION
  Report Type: Spontaneous
  Country: FR (occurrence: FR)
  Receive Date: 20240101
  Receipt Date: 20240101
  Transmission Date: 20240409
  Serious: Yes (Hospitalization, Other)
  Sender: FDA-Public Use
  Company Number: FR-AFSSAPS-AN2023001648

PATIENT
  Age: 86 Year
  Sex: Female
  Weight: 51 kg

DRUGS (1)
  1. AMOXICILLIN [Suspect]
     Active Substance: AMOXICILLIN
     Indication: Endocarditis
     Dosage: 12 GRAM, ONCE A DAY
     Route: 042
     Dates: start: 20231030, end: 20231201

REACTIONS (2)
  - Tonic convulsion [Recovered/Resolved]
  - Acute kidney injury [Recovered/Resolved]

NARRATIVE: CASE EVENT DATE: 20231130
